FAERS Safety Report 21902777 (Version 1)
Quarter: 2023Q1

REPORT INFORMATION
  Report Type: Spontaneous
  Country: US (occurrence: US)
  Receive Date: 20230124
  Receipt Date: 20230124
  Transmission Date: 20230418
  Serious: Yes (Hospitalization)
  Sender: FDA-Public Use
  Company Number: US-BRISTOL-MYERS SQUIBB COMPANY-2023-009186

PATIENT
  Age: 74 Year
  Sex: Male

DRUGS (1)
  1. POMALYST [Suspect]
     Active Substance: POMALIDOMIDE
     Indication: Chronic lymphocytic leukaemia
     Dosage: QD X 21 DAYS THEN 7 DAYS OFF
     Route: 048
     Dates: start: 20220819

REACTIONS (2)
  - Hospitalisation [Unknown]
  - Off label use [Unknown]
